FAERS Safety Report 18045383 (Version 1)
Quarter: 2020Q3

REPORT INFORMATION
  Report Type: Spontaneous
  Country: US (occurrence: US)
  Receive Date: 20200720
  Receipt Date: 20200720
  Transmission Date: 20201103
  Serious: Yes (Hospitalization)
  Sender: FDA-Public Use
  Company Number: US-MALLINCKRODT-T202003587

PATIENT
  Age: 1 Year
  Sex: Male

DRUGS (1)
  1. H.P. ACTHAR [Suspect]
     Active Substance: CORTICOTROPIN
     Indication: EPILEPSY
     Dosage: 0.46 MILLILITER, BID (DAYS 01?14)
     Route: 058
     Dates: start: 202007

REACTIONS (1)
  - Illness [Unknown]

NARRATIVE: CASE EVENT DATE: 202007
